FAERS Safety Report 8108496-9 (Version None)
Quarter: 2012Q1

REPORT INFORMATION
  Report Type: 
  Country: None (occurrence: None)
  Receive Date: 20120202
  Receipt Date: 20120130
  Transmission Date: 20120608
  Serious: Yes (Other)
  Sender: FDA-Public Use
  Company Number: JP-PFIZER INC-2011312918

PATIENT
  Age: 84 Year
  Sex: Female

DRUGS (4)
  1. ALDACTONE [Suspect]
     Dosage: 25 MG, 1X/DAY
     Route: 048
     Dates: start: 20091021, end: 20091101
  2. VOLTAREN [Suspect]
     Indication: MUSCULOSKELETAL PAIN
  3. PREDNISOLONE [Suspect]
     Indication: MUSCULOSKELETAL PAIN
  4. PROGRAF [Concomitant]
     Indication: RHEUMATOID ARTHRITIS

REACTIONS (9)
  - CYTOMEGALOVIRUS INFECTION [None]
  - GASTRIC ULCER [None]
  - PYLORIC STENOSIS [None]
  - TREMOR [None]
  - FAECES DISCOLOURED [None]
  - LIP SWELLING [None]
  - DECREASED APPETITE [None]
  - GASTROINTESTINAL HAEMORRHAGE [None]
  - MALAISE [None]
